FAERS Safety Report 6418875-3 (Version None)
Quarter: 2009Q4

REPORT INFORMATION
  Report Type: 
  Country: None (occurrence: None)
  Receive Date: 20091029
  Receipt Date: 20091020
  Transmission Date: 20100525
  Serious: Yes (Death)
  Sender: FDA-Public Use
  Company Number: US-BIOGENIDEC-2009BI034070

PATIENT
  Age: 52 Year
  Sex: Female

DRUGS (2)
  1. AVONEX [Suspect]
     Indication: MULTIPLE SCLEROSIS
     Route: 030
     Dates: start: 20001103
  2. IMMUNOGLOBULINS [Concomitant]
     Indication: IMMUNE SYSTEM DISORDER

REACTIONS (2)
  - DRUG INEFFECTIVE [None]
  - INTRACRANIAL ANEURYSM [None]
